FAERS Safety Report 4481053-1 (Version None)
Quarter: 2004Q4

REPORT INFORMATION
  Report Type: 
  Country: None (occurrence: None)
  Receive Date: 20041019
  Receipt Date: 20041004
  Transmission Date: 20050328
  Serious: Yes (Hospitalization)
  Sender: FDA-Public Use
  Company Number: HQWYE548405OCT04

PATIENT
  Age: 48 Year
  Sex: Female
  Weight: 74.91 kg

DRUGS (3)
  1. EFFEXOR XR [Suspect]
     Indication: ANXIETY
     Dosage: 150 MG 1X PER 1 DAY, ORAL
     Route: 048
     Dates: end: 20040930
  2. TYLENOL PM (DIPHENHYDRAMINE/PARACETMOL) [Concomitant]
  3. NITROGLYCERIN ^PHARMACIA-UPJOHN^ (GLYCERYL TRINITRATE) [Concomitant]

REACTIONS (11)
  - ANXIETY [None]
  - CHEST PAIN [None]
  - DIZZINESS [None]
  - DYSPNOEA [None]
  - GASTROINTESTINAL MOTILITY DISORDER [None]
  - MOOD ALTERED [None]
  - NAUSEA [None]
  - SEROTONIN SYNDROME [None]
  - TACHYCARDIA [None]
  - TREMOR [None]
  - VOMITING [None]
